FAERS Safety Report 23640951 (Version 1)
Quarter: 2024Q1

REPORT INFORMATION
  Report Type: Report from Study
  Country: US (occurrence: US)
  Receive Date: 20240318
  Receipt Date: 20240318
  Transmission Date: 20240410
  Serious: Yes (Hospitalization, Other)
  Sender: FDA-Public Use
  Company Number: US-AUROBINDO-AUR-APL-2024-012159

PATIENT
  Weight: 70.7 kg

DRUGS (1)
  1. SERTRALINE [Suspect]
     Active Substance: SERTRALINE HYDROCHLORIDE
     Indication: Product used for unknown indication
     Dosage: 2100 MILLIGRAM/KILOGRAM (29.7)
     Route: 048

REACTIONS (2)
  - Serotonin syndrome [Unknown]
  - Intentional overdose [Unknown]
